FAERS Safety Report 6814188-6 (Version None)
Quarter: 2010Q2

REPORT INFORMATION
  Report Type: 
  Country: None (occurrence: None)
  Receive Date: 20100629
  Receipt Date: 20100614
  Transmission Date: 20101027
  Serious: Yes (Life-Threatening, Hospitalization, Other)
  Sender: FDA-Public Use
  Company Number: AMAG201000262

PATIENT
  Age: 86 Year
  Sex: Male
  Weight: 72.6 kg

DRUGS (6)
  1. FERAHEME [Suspect]
     Indication: IRON DEFICIENCY ANAEMIA
     Dosage: 510 MG, SINGLE, INTRAVENOUS, 255 MG, SINGLE, INTRAVENOUS
     Route: 042
     Dates: start: 20100604, end: 20100604
  2. FERAHEME [Suspect]
     Indication: IRON DEFICIENCY ANAEMIA
     Dosage: 510 MG, SINGLE, INTRAVENOUS, 255 MG, SINGLE, INTRAVENOUS
     Route: 042
     Dates: start: 20100610, end: 20100610
  3. COUMADIN SODIUM (WARFARIN SODIUM) [Concomitant]
  4. NORVASC [Concomitant]
  5. COREG [Concomitant]
  6. LIPITOR [Concomitant]

REACTIONS (2)
  - CARDIAC ARREST [None]
  - RESPIRATORY ARREST [None]
